FAERS Safety Report 6889260-5 (Version None)
Quarter: 2010Q3

REPORT INFORMATION
  Report Type: 
  Country: None (occurrence: None)
  Receive Date: 20100730
  Receipt Date: 20080218
  Transmission Date: 20110219
  Serious: No
  Sender: FDA-Public Use
  Company Number: US-PFIZER INC-2007105172

PATIENT
  Sex: Female

DRUGS (2)
  1. LIPITOR [Suspect]
  2. CHANTIX [Concomitant]

REACTIONS (2)
  - MALAISE [None]
  - MUSCULAR WEAKNESS [None]
